FAERS Safety Report 9508905 (Version 2)
Quarter: 2013Q3

REPORT INFORMATION
  Report Type: Spontaneous
  Country: US (occurrence: US)
  Receive Date: 20130909
  Receipt Date: 20130909
  Transmission Date: 20140515
  Serious: No
  Sender: FDA-Public Use
  Company Number: US-BRISTOL-MYERS SQUIBB COMPANY-19118447

PATIENT
  Age: 60 Year
  Sex: Female
  Weight: 90.7 kg

DRUGS (3)
  1. ABILIFY INJECTION [Suspect]
     Indication: SCHIZOPHRENIA
     Dosage: ABILIFY MAINTENA?10JUL13:300MG
     Route: 065
     Dates: start: 20130605
  2. CELEXA [Concomitant]
  3. COGENTIN [Concomitant]

REACTIONS (3)
  - Extrapyramidal disorder [Recovered/Resolved]
  - Oedema peripheral [Unknown]
  - Rash pruritic [Unknown]
